FAERS Safety Report 24293642 (Version 1)
Quarter: 2024Q3

REPORT INFORMATION
  Report Type: Spontaneous
  Country: US (occurrence: None)
  Receive Date: 20240906
  Receipt Date: 20240906
  Transmission Date: 20241017
  Serious: No
  Sender: DOMPE FARMACEUTICI
  Company Number: US-FARMAPROD-202402-0540

PATIENT
  Sex: Male

DRUGS (9)
  1. OXERVATE [Suspect]
     Active Substance: CENEGERMIN-BKBJ
     Indication: Neurotrophic keratopathy
     Route: 047
     Dates: start: 20240212
  2. OXERVATE [Suspect]
     Active Substance: CENEGERMIN-BKBJ
  3. OXERVATE [Suspect]
     Active Substance: CENEGERMIN-BKBJ
  4. OMEPRAZOLE [Concomitant]
     Active Substance: OMEPRAZOLE
  5. ACETAMINOPHEN\HYDROCODONE [Concomitant]
     Active Substance: ACETAMINOPHEN\HYDROCODONE
  6. OFLOXACIN [Concomitant]
     Active Substance: OFLOXACIN
  7. FUROSEMIDE [Concomitant]
     Active Substance: FUROSEMIDE
  8. LOMOTIL [Concomitant]
     Active Substance: ATROPINE SULFATE\DIPHENOXYLATE HYDROCHLORIDE
     Dosage: 2.5-.025MG
  9. FEBUXOSTAT [Concomitant]
     Active Substance: FEBUXOSTAT

REACTIONS (2)
  - Accidental overdose [Unknown]
  - Eye pain [Unknown]
